FAERS Safety Report 12198580 (Version 1)
Quarter: 2016Q1

REPORT INFORMATION
  Report Type: Spontaneous
  Country: US (occurrence: None)
  Receive Date: 20160321
  Receipt Date: 20160321
  Transmission Date: 20160526
  Serious: Yes (Other)
  Sender: FDA-Public Use
  Company Number: None

PATIENT
  Age: 61 Year
  Sex: Female
  Weight: 102.06 kg

DRUGS (2)
  1. BETAMETHASONE .5MG/2ML SOL CMP.PW TAG PHARMACY - [Suspect]
     Active Substance: BETAMETHASONE
     Indication: CHRONIC SINUSITIS
     Route: 055
     Dates: start: 20140208, end: 20140222
  2. TOBRAMYCIN 100 MG 2 ML SOL CMP-PW TAG PHARMACY [Suspect]
     Active Substance: TOBRAMYCIN
     Indication: CHRONIC SINUSITIS
     Route: 055
     Dates: start: 20140208, end: 20140222

REACTIONS (2)
  - Blepharospasm [None]
  - Anosmia [None]

NARRATIVE: CASE EVENT DATE: 20140208
